FAERS Safety Report 6084526-3 (Version None)
Quarter: 2009Q1

REPORT INFORMATION
  Report Type: 
  Country: None (occurrence: None)
  Receive Date: 20090217
  Receipt Date: 20090121
  Transmission Date: 20090719
  Serious: Yes (Life-Threatening)
  Sender: FDA-Public Use
  Company Number: 1-17546364

PATIENT
  Age: 50 Year
  Sex: Female

DRUGS (3)
  1. FENTANYL-25 [Suspect]
     Dosage: 10 MCG, INTRAVENOUS
     Route: 042
  2. CISATRACURIUM BESILATE [Suspect]
     Dosage: 6 MG, INTRAVENOUS
     Route: 042
  3. PROPOFOL [Suspect]
     Dosage: 100 MG, INTRAVENOUS
     Route: 042

REACTIONS (4)
  - ANAPHYLACTIC SHOCK [None]
  - BRONCHOSPASM [None]
  - CARDIAC OUTPUT DECREASED [None]
  - HYPOTENSION [None]
